FAERS Safety Report 17221329 (Version 1)
Quarter: 2019Q4

REPORT INFORMATION
  Report Type: Spontaneous
  Country: CN (occurrence: CN)
  Receive Date: 20191231
  Receipt Date: 20191231
  Transmission Date: 20200122
  Serious: Yes (Hospitalization)
  Sender: FDA-Public Use
  Company Number: CN-BAXTER-2019BAX026301

PATIENT
  Age: 49 Year
  Sex: Female

DRUGS (3)
  1. 20% MANNITOL INJECTION [Suspect]
     Active Substance: MANNITOL
     Indication: SWELLING
  2. XIFEQUAN [DALTEPARIN SODIUM] [Suspect]
     Active Substance: DALTEPARIN SODIUM
     Indication: THROMBOSIS PROPHYLAXIS
     Dosage: XIFEQUAN (DALTEPARIN SODIUM)?LOW MOLECULAR WEIGHT HEPARIN SODIUM INJECTION
     Route: 058
     Dates: start: 20191206, end: 20191207
  3. 20% MANNITOL INJECTION [Suspect]
     Active Substance: MANNITOL
     Indication: DIURETIC THERAPY
     Route: 041
     Dates: start: 20191205, end: 20191209

REACTIONS (1)
  - Haemoglobin decreased [Not Recovered/Not Resolved]

NARRATIVE: CASE EVENT DATE: 20191209
